FAERS Safety Report 24366433 (Version 1)
Quarter: 2024Q3

REPORT INFORMATION
  Report Type: Spontaneous
  Country: US (occurrence: US)
  Receive Date: 20240926
  Receipt Date: 20240926
  Transmission Date: 20241017
  Serious: Yes (Hospitalization, Other)
  Sender: BIOGEN
  Company Number: US-BBU-2024000278

PATIENT
  Age: 79 Year
  Sex: Female

DRUGS (3)
  1. TOCILIZUMAB [Suspect]
     Active Substance: TOCILIZUMAB
     Indication: Rheumatoid arthritis
     Dates: start: 2023, end: 202306
  2. GOLIMUMAB [Suspect]
     Active Substance: GOLIMUMAB
     Indication: Rheumatoid arthritis
  3. PREDNISONE [Suspect]
     Active Substance: PREDNISONE
     Indication: Rheumatoid arthritis

REACTIONS (2)
  - Mycobacterium abscessus infection [Recovering/Resolving]
  - Pneumonia necrotising [Recovering/Resolving]

NARRATIVE: CASE EVENT DATE: 20230501
